FAERS Safety Report 6846925-9 (Version None)
Quarter: 2010Q3

REPORT INFORMATION
  Report Type: 
  Country: None (occurrence: None)
  Receive Date: 20100715
  Receipt Date: 20070924
  Transmission Date: 20110219
  Serious: No
  Sender: FDA-Public Use
  Company Number: US-PFIZER INC-2007080509

PATIENT
  Sex: Female
  Weight: 122.72 kg

DRUGS (5)
  1. CHANTIX [Suspect]
     Indication: SMOKING CESSATION THERAPY
     Route: 048
     Dates: start: 20070917
  2. METFORMIN HCL [Concomitant]
     Indication: DIABETES MELLITUS
  3. BENICAR [Concomitant]
     Indication: BLOOD PRESSURE ABNORMAL
  4. SYNTHROID [Concomitant]
  5. CELEBREX [Concomitant]

REACTIONS (2)
  - DYSGEUSIA [None]
  - NAUSEA [None]
